FAERS Safety Report 9329740 (Version 1)
Quarter: 2013Q2

REPORT INFORMATION
  Report Type: Spontaneous
  Country: US (occurrence: US)
  Receive Date: 20130604
  Receipt Date: 20130604
  Transmission Date: 20140414
  Serious: No
  Sender: FDA-Public Use
  Company Number: US-ASTRAZENECA-2013SE36649

PATIENT
  Age: 77 Year
  Sex: Male
  Weight: 56.7 kg

DRUGS (13)
  1. SYMBICORT [Suspect]
     Indication: CHRONIC OBSTRUCTIVE PULMONARY DISEASE
     Dosage: 160/4.5 MCG 2 PUFFS, BID
     Route: 055
  2. SYMBICORT [Suspect]
     Indication: CHRONIC OBSTRUCTIVE PULMONARY DISEASE
     Dosage: 160/4.5 MCG 2 PUFFS, BID
     Route: 055
  3. POTASSIUM [Concomitant]
     Indication: SUPPLEMENTATION THERAPY
     Dosage: 1 DAILY
  4. RANITIDINE [Concomitant]
     Indication: GASTRIC DISORDER
  5. TERAZOSIN [Concomitant]
  6. PRAVASTATIN [Concomitant]
  7. BISOPROLOL [Concomitant]
  8. ASPIRIN [Concomitant]
     Indication: CARDIAC DISORDER
  9. XARELTO [Concomitant]
     Indication: ANTICOAGULANT THERAPY
  10. AMLODIPINE [Concomitant]
     Indication: BLOOD PRESSURE ABNORMAL
  11. FENOFIBRATE [Concomitant]
  12. FLUCATISONE [Concomitant]
     Indication: MULTIPLE ALLERGIES
  13. EYE CAPS [Concomitant]
     Indication: EYE DISORDER
     Dosage: 1 DAILY

REACTIONS (3)
  - Glaucoma [Unknown]
  - Memory impairment [Unknown]
  - Heart rate increased [Unknown]
